FAERS Safety Report 19804218 (Version 1)
Quarter: 2021Q3

REPORT INFORMATION
  Report Type: Spontaneous
  Country: US (occurrence: US)
  Receive Date: 20210908
  Receipt Date: 20210908
  Transmission Date: 20211014
  Serious: No
  Sender: FDA-Public Use
  Company Number: US-FARMAPROD-202012-1726

PATIENT
  Sex: Female

DRUGS (12)
  1. OXERVATE [Suspect]
     Active Substance: CENEGERMIN-BKBJ
     Indication: HYPOAESTHESIA EYE
  2. FISH OIL [Concomitant]
     Active Substance: FISH OIL
     Dosage: 100?150 MG
  3. ALOGLIPTIN. [Concomitant]
     Active Substance: ALOGLIPTIN
  4. SIMVASTATIN. [Concomitant]
     Active Substance: SIMVASTATIN
  5. PREDNISOLONE SOLUTION [Concomitant]
     Active Substance: PREDNISOLONE
     Dosage: 15 MG/5 ML
  6. OXERVATE [Suspect]
     Active Substance: CENEGERMIN-BKBJ
     Indication: NEUROTROPHIC KERATOPATHY
  7. OFLOXACIN. [Concomitant]
     Active Substance: OFLOXACIN
  8. MULTIVITAMINES [Concomitant]
     Active Substance: VITAMINS
  9. ZYRTEC [Concomitant]
     Active Substance: CETIRIZINE HYDROCHLORIDE
  10. SERTRALINE HYDROCHLORIDE. [Concomitant]
     Active Substance: SERTRALINE HYDROCHLORIDE
  11. METFORMINE [Concomitant]
     Active Substance: METFORMIN HYDROCHLORIDE
     Dosage: EXTENDED RELEASE GASTRIC
  12. OXERVATE [Suspect]
     Active Substance: CENEGERMIN-BKBJ
     Indication: ULCERATIVE KERATITIS
     Route: 047
     Dates: start: 202012

REACTIONS (3)
  - Eyelid pain [Unknown]
  - Swelling of eyelid [Unknown]
  - Wrong technique in product usage process [Unknown]
